FAERS Safety Report 16872931 (Version 1)
Quarter: 2019Q4

REPORT INFORMATION
  Report Type: Report from Study
  Country: JP (occurrence: JP)
  Receive Date: 20191001
  Receipt Date: 20191001
  Transmission Date: 20200122
  Serious: Yes (Other)
  Sender: FDA-Public Use
  Company Number: JP-KYOWAKIRIN-2017AKK003221AA

PATIENT

DRUGS (14)
  1. SUMILU [Concomitant]
     Active Substance: FELBINAC
     Indication: MYALGIA
     Dosage: ADEQUATE DOSE
     Route: 061
  2. CYMBALTA [Concomitant]
     Active Substance: DULOXETINE HYDROCHLORIDE
     Indication: DEPRESSION
     Dosage: 20 MG, QD
     Route: 048
  3. STALEVO [Concomitant]
     Active Substance: CARBIDOPA\ENTACAPONE\LEVODOPA
     Indication: PARKINSON^S DISEASE
     Dosage: 200 MG, QID
     Route: 048
  4. ISTRADEFYLLINE [Suspect]
     Active Substance: ISTRADEFYLLINE
     Indication: PARKINSON^S DISEASE
     Dosage: 20 MG, QD
     Route: 048
     Dates: start: 20170512
  5. MOSAPRIDE                          /01524402/ [Concomitant]
     Indication: CHRONIC GASTRITIS
     Dosage: 5 MG, QD
     Route: 048
  6. NEUPRO [Concomitant]
     Active Substance: ROTIGOTINE
     Indication: PARKINSON^S DISEASE
     Dosage: 4.5 MG, QD
     Route: 062
     Dates: end: 20171122
  7. MEMARY [Concomitant]
     Active Substance: MEMANTINE HYDROCHLORIDE
     Indication: DEMENTIA
     Dosage: 5 MG, QD
     Route: 048
  8. KENEI G [Concomitant]
     Active Substance: GLYCERIN
     Indication: CONSTIPATION
     Dosage: 60 ML, PRN
     Route: 054
  9. RIVOTRIL [Concomitant]
     Active Substance: CLONAZEPAM
     Indication: INTERVERTEBRAL DISC PROTRUSION
     Dosage: 0.5 MG, BID
     Route: 048
  10. SENNOSIDE                          /00571901/ [Concomitant]
     Active Substance: SENNOSIDES A AND B
     Indication: CONSTIPATION
     Dosage: 24 MG, QD
     Route: 048
  11. RINDERON VG [Concomitant]
     Active Substance: BETAMETHASONE VALERATE\GENTAMICIN SULFATE
     Indication: PROPHYLAXIS
     Dosage: ADEQUATE DOSE
     Route: 061
  12. ENEVO [Concomitant]
     Indication: MALNUTRITION
     Dosage: 250 ML, QD
     Route: 048
  13. ARICEPT [Concomitant]
     Active Substance: DONEPEZIL HYDROCHLORIDE
     Indication: DEMENTIA
     Dosage: 5 MG, QD
     Route: 048
  14. NEUPRO [Concomitant]
     Active Substance: ROTIGOTINE
     Dosage: 9 MG, QD
     Dates: start: 20171122

REACTIONS (2)
  - Rhinitis allergic [Recovered/Resolved]
  - Atrial fibrillation [Not Recovered/Not Resolved]

NARRATIVE: CASE EVENT DATE: 20170920
